FAERS Safety Report 14566192 (Version 2)
Quarter: 2018Q1

REPORT INFORMATION
  Report Type: Spontaneous
  Country: US (occurrence: US)
  Receive Date: 20180223
  Receipt Date: 20180307
  Transmission Date: 20180509
  Serious: Yes (Hospitalization, Other)
  Sender: FDA-Public Use
  Company Number: US-CONCORDIA PHARMACEUTICALS INC.-GSH201802-000626

PATIENT
  Age: 55 Year
  Sex: Female

DRUGS (2)
  1. HYDROXYCHLOROQUINE [Suspect]
     Active Substance: HYDROXYCHLOROQUINE
     Indication: SYSTEMIC LUPUS ERYTHEMATOSUS
     Route: 065
  2. PREDNISONE. [Suspect]
     Active Substance: PREDNISONE

REACTIONS (9)
  - Electrocardiogram ST segment elevation [Unknown]
  - Chest pain [Unknown]
  - Dyspnoea [Unknown]
  - Intracardiac thrombus [Unknown]
  - Cardiac failure [Unknown]
  - Chest discomfort [Unknown]
  - Ejection fraction decreased [Unknown]
  - Cardiomyopathy [Unknown]
  - Toxicity to various agents [Unknown]

NARRATIVE: CASE EVENT DATE: 201703
